FAERS Safety Report 10574381 (Version 1)
Quarter: 2014Q4

REPORT INFORMATION
  Report Type: Spontaneous
  Country: ES (occurrence: ES)
  Receive Date: 20141110
  Receipt Date: 20141110
  Transmission Date: 20150529
  Serious: Yes (Life-Threatening, Hospitalization)
  Sender: FDA-Public Use
  Company Number: ES-BAYER-2014-162146

PATIENT
  Age: 59 Year
  Sex: Male

DRUGS (4)
  1. ADIRO 100 [Suspect]
     Active Substance: ASPIRIN
     Indication: SUICIDE ATTEMPT
     Dosage: 100 MG
     Route: 048
     Dates: start: 20140514, end: 20140514
  2. ENALAPRIL [Suspect]
     Active Substance: ENALAPRIL
     Indication: SUICIDE ATTEMPT
     Dosage: 5 MG
     Route: 048
     Dates: start: 20140514, end: 20140514
  3. TRANXILIUM [Suspect]
     Active Substance: CLORAZEPATE DIPOTASSIUM
     Indication: SUICIDE ATTEMPT
     Dosage: 10 MG
     Route: 048
     Dates: start: 20140514, end: 20140514
  4. MANIDON [Suspect]
     Active Substance: VERAPAMIL HYDROCHLORIDE
     Indication: SUICIDE ATTEMPT
     Dosage: 80 MG
     Route: 048
     Dates: start: 20140514, end: 20140514

REACTIONS (4)
  - Suicide attempt [None]
  - Atrioventricular block complete [Recovered/Resolved]
  - Intentional overdose [None]
  - Cardiogenic shock [Recovering/Resolving]

NARRATIVE: CASE EVENT DATE: 20140514
